FAERS Safety Report 8282959-8 (Version None)
Quarter: 2012Q2

REPORT INFORMATION
  Report Type: 
  Country: None (occurrence: None)
  Receive Date: 20120413
  Receipt Date: 20120330
  Transmission Date: 20120825
  Serious: Yes (Other)
  Sender: FDA-Public Use
  Company Number: US-ROCHE-1055180

PATIENT
  Sex: Male
  Weight: 54.88 kg

DRUGS (5)
  1. GS 5885 (HCV NS5A INHIBITOR) [Suspect]
     Indication: HEPATITIS C
     Route: 048
     Dates: start: 20111104, end: 20120126
  2. GS 9451 (NS3 PROTEASE INHIBITOR) [Suspect]
     Indication: HEPATITIS C
     Route: 048
     Dates: start: 20111104, end: 20120126
  3. COPEGUS [Suspect]
     Indication: HEPATITIS C
     Route: 048
     Dates: start: 20111104, end: 20120126
  4. TYLENOL (CAPLET) [Concomitant]
     Dates: start: 20111104
  5. PEGINTERFERON ALFA-2A [Suspect]
     Indication: HEPATITIS C
     Route: 058
     Dates: start: 20111104, end: 20120126

REACTIONS (3)
  - RASH [None]
  - RASH MACULAR [None]
  - SKIN ULCER [None]
